FAERS Safety Report 6312363-0 (Version None)
Quarter: 2009Q3

REPORT INFORMATION
  Report Type: 
  Country: None (occurrence: None)
  Receive Date: 20090817
  Receipt Date: 20090810
  Transmission Date: 20100115
  Serious: Yes (Other)
  Sender: FDA-Public Use
  Company Number: US-JNJCH-2009021538

PATIENT
  Sex: Male
  Weight: 79.4 kg

DRUGS (4)
  1. BENADRYL [Suspect]
     Indication: DRUG USE FOR UNKNOWN INDICATION
     Dosage: TEXT:UNSPECIFIED
     Route: 048
  2. HYDROCHLOROTHIAZIDE [Concomitant]
     Indication: DIURETIC THERAPY
     Dosage: TEXT:UNKNOWN DAILY
     Route: 065
  3. LEVOXYL [Concomitant]
     Indication: THYROID DISORDER
     Dosage: TEXT:UNKNOWN DAILY
     Route: 065
  4. POTASSIUM CHLORIDE [Concomitant]
     Indication: VITAMIN SUPPLEMENTATION
     Dosage: TEXT:UNKNOWN DAILY
     Route: 065

REACTIONS (2)
  - CONVULSION [None]
  - HYPERSENSITIVITY [None]
